FAERS Safety Report 7903119-3 (Version None)
Quarter: 2011Q4

REPORT INFORMATION
  Report Type: 
  Country: None (occurrence: None)
  Receive Date: 20111109
  Receipt Date: 20111104
  Transmission Date: 20120403
  Serious: Yes (Hospitalization)
  Sender: FDA-Public Use
  Company Number: US-BRISTOL-MYERS SQUIBB COMPANY-16216897

PATIENT
  Age: 70 Year
  Sex: Male
  Weight: 171 kg

DRUGS (2)
  1. PEMETREXED DISODIUM [Suspect]
     Indication: NON-SMALL CELL LUNG CANCER
     Dosage: LAST DOSE:19SEP11
     Route: 042
     Dates: start: 20110804
  2. CARBOPLATIN [Suspect]
     Indication: NON-SMALL CELL LUNG CANCER
     Dosage: 1 DF: 6 AUC LAST DOSE:19SEP11
     Route: 042
     Dates: start: 20110804

REACTIONS (2)
  - NAUSEA [None]
  - HYPERCALCAEMIA [None]
